FAERS Safety Report 6750423-0 (Version None)
Quarter: 2010Q2

REPORT INFORMATION
  Report Type: 
  Country: None (occurrence: None)
  Receive Date: 20100601
  Receipt Date: 20100519
  Transmission Date: 20101027
  Serious: Yes (Hospitalization, Other)
  Sender: FDA-Public Use
  Company Number: CA-ELI_LILLY_AND_COMPANY-CA201005005464

PATIENT
  Age: 57 Year
  Sex: Male
  Weight: 83.447 kg

DRUGS (9)
  1. ZYPREXA [Suspect]
     Indication: SCHIZOPHRENIA
     Dosage: 15 MG, UNKNOWN
  2. ZYPREXA [Suspect]
     Dosage: 10 MG, UNKNOWN
  3. ZYPREXA [Suspect]
     Dosage: 5 MG, UNKNOWN
  4. QUETIAPINE [Concomitant]
     Dosage: 25 MG, UNKNOWN
     Dates: start: 20080401
  5. RAMIPRIL [Concomitant]
  6. METOPROLOL SUCCINATE [Concomitant]
  7. ENTROPHEN [Concomitant]
  8. SALBUTAMOL [Concomitant]
  9. PLAVIX [Concomitant]

REACTIONS (9)
  - BLOOD CHOLESTEROL ABNORMAL [None]
  - DEPENDENCE [None]
  - DIABETES MELLITUS [None]
  - EPIDIDYMAL CYST [None]
  - HAEMORRHAGE URINARY TRACT [None]
  - MYOCARDIAL INFARCTION [None]
  - PANCREATITIS [None]
  - RASH [None]
  - VISION BLURRED [None]
